FAERS Safety Report 19960642 (Version 2)
Quarter: 2021Q4

REPORT INFORMATION
  Report Type: Report from Study
  Country: CO (occurrence: CO)
  Receive Date: 20211016
  Receipt Date: 20211115
  Transmission Date: 20220303
  Serious: Yes (Other)
  Sender: FDA-Public Use
  Company Number: CO-ABBVIE-21K-036-4121679-00

PATIENT
  Sex: Male
  Weight: 90 kg

DRUGS (3)
  1. HUMIRA [Suspect]
     Active Substance: ADALIMUMAB
     Indication: Psoriasis
     Route: 058
  2. HUMIRA [Suspect]
     Active Substance: ADALIMUMAB
     Route: 058
  3. HUMIRA [Suspect]
     Active Substance: ADALIMUMAB
     Indication: Product used for unknown indication
     Route: 058
     Dates: start: 20150701

REACTIONS (7)
  - Visual impairment [Not Recovered/Not Resolved]
  - Prostatic disorder [Not Recovered/Not Resolved]
  - Overweight [Not Recovered/Not Resolved]
  - Diabetes mellitus [Not Recovered/Not Resolved]
  - Drug ineffective [Not Recovered/Not Resolved]
  - Psoriasis [Not Recovered/Not Resolved]
  - Hypertension [Not Recovered/Not Resolved]

NARRATIVE: CASE EVENT DATE: 20210101
